FAERS Safety Report 17352257 (Version 1)
Quarter: 2020Q1

REPORT INFORMATION
  Report Type: Spontaneous
  Country: US (occurrence: US)
  Receive Date: 20200130
  Receipt Date: 20200130
  Transmission Date: 20200409
  Serious: Yes (Hospitalization)
  Sender: FDA-Public Use
  Company Number: US-ASTRAZENECA-2020SE14332

PATIENT
  Sex: Male

DRUGS (2)
  1. SYNAGIS [Suspect]
     Active Substance: PALIVIZUMAB
     Indication: ATRIOVENTRICULAR SEPTAL DEFECT
     Route: 030
     Dates: start: 20200121
  2. SYNAGIS [Suspect]
     Active Substance: PALIVIZUMAB
     Indication: ATRIOVENTRICULAR SEPTAL DEFECT
     Dosage: 50MG/VL 15 MG/KG, MONTHLY
     Route: 030
     Dates: start: 20200121

REACTIONS (1)
  - Dehydration [Unknown]
